FAERS Safety Report 15846572 (Version 1)
Quarter: 2019Q1

REPORT INFORMATION
  Report Type: Report from Study
  Country: None (occurrence: CA)
  Receive Date: 20190121
  Receipt Date: 20190121
  Transmission Date: 20190417
  Serious: Yes (Other)
  Sender: FDA-Public Use
  Company Number: CA-ABBVIE-18K-028-2273007-00

PATIENT
  Age: 68 Year
  Sex: Female

DRUGS (2)
  1. HUMIRA [Suspect]
     Active Substance: ADALIMUMAB
     Indication: RHEUMATOID ARTHRITIS
     Route: 058
     Dates: start: 20061216, end: 201802
  2. HUMIRA [Suspect]
     Active Substance: ADALIMUMAB
     Route: 058
     Dates: start: 201807

REACTIONS (5)
  - Solar lentigo [Unknown]
  - Diaphragm neoplasm [Unknown]
  - Fatigue [Not Recovered/Not Resolved]
  - Endometrial cancer [Recovering/Resolving]
  - Renal mass [Unknown]

NARRATIVE: CASE EVENT DATE: 201712
